FAERS Safety Report 13334192 (Version 1)
Quarter: 2017Q1

REPORT INFORMATION
  Report Type: Spontaneous
  Country: US (occurrence: US)
  Receive Date: 20170314
  Receipt Date: 20170314
  Transmission Date: 20170428
  Serious: Yes (Hospitalization)
  Sender: FDA-Public Use
  Company Number: US-JNJFOC-20170102855

PATIENT
  Age: 81 Year
  Sex: Female

DRUGS (15)
  1. VITAMIN D [Concomitant]
     Active Substance: CHOLECALCIFEROL
     Dosage: 1000 UNIT, QD
     Route: 048
  2. IMBRUVICA [Suspect]
     Active Substance: IBRUTINIB
     Indication: CHRONIC LYMPHOCYTIC LEUKAEMIA
     Route: 048
  3. SYNTHROID [Concomitant]
     Active Substance: LEVOTHYROXINE SODIUM
     Route: 048
  4. SIMETHICONE (DIMETHICONE) [Concomitant]
     Active Substance: DIMETHICONE
     Indication: FLATULENCE
     Route: 048
  5. MELATONIN [Concomitant]
     Active Substance: MELATONIN
  6. REMERON [Concomitant]
     Active Substance: MIRTAZAPINE
     Dosage: QHS
     Route: 048
  7. DESYREL [Concomitant]
     Active Substance: TRAZODONE HYDROCHLORIDE
     Dosage: 50 MG, QHS
     Route: 048
  8. DULCOLAX NOS [Concomitant]
     Active Substance: BISACODYL OR DOCUSATE SODIUM
     Route: 054
  9. TYLENOL [Concomitant]
     Active Substance: ACETAMINOPHEN
     Indication: PAIN
     Route: 048
  10. LIPITOR [Concomitant]
     Active Substance: ATORVASTATIN CALCIUM
     Route: 048
  11. DEPAKOTE [Concomitant]
     Active Substance: DIVALPROEX SODIUM
     Route: 048
  12. LASIX [Concomitant]
     Active Substance: FUROSEMIDE
     Dosage: 1 DF, IN THE MORNING
     Route: 048
  13. HALDOL [Concomitant]
     Active Substance: HALOPERIDOL
     Route: 048
  14. ATIVAN [Concomitant]
     Active Substance: LORAZEPAM
     Route: 048
  15. POLYETHYLENE GLYCOL [Concomitant]
     Active Substance: POLYETHYLENE GLYCOLS
     Dosage: UNK, QD, TWO TIME

REACTIONS (2)
  - Anaemia [Unknown]
  - Dementia [Unknown]

NARRATIVE: CASE EVENT DATE: 20161208
